FAERS Safety Report 6192012-5 (Version None)
Quarter: 2009Q2

REPORT INFORMATION
  Report Type: 
  Country: None (occurrence: None)
  Receive Date: 20090515
  Receipt Date: 20081024
  Transmission Date: 20091009
  Serious: Yes (Hospitalization)
  Sender: FDA-Public Use
  Company Number: B0573858A

PATIENT
  Age: 44 Year
  Sex: Female

DRUGS (1)
  1. ARIXTRA [Suspect]
     Indication: PHLEBITIS
     Route: 058
     Dates: start: 20080101

REACTIONS (1)
  - HEPARIN-INDUCED THROMBOCYTOPENIA [None]
